FAERS Safety Report 20027786 (Version 5)
Quarter: 2021Q4

REPORT INFORMATION
  Report Type: Report from Study
  Country: GB (occurrence: GB)
  Receive Date: 20211103
  Receipt Date: 20211228
  Transmission Date: 20220303
  Serious: Yes (Hospitalization, Other)
  Sender: FDA-Public Use
  Company Number: GB-CELLTRION INC.-2021GB014747

PATIENT

DRUGS (2)
  1. INFLIXIMAB [Suspect]
     Active Substance: INFLIXIMAB
     Indication: Inflammatory bowel disease
     Dosage: UNK (DOSE FORM: 230)
     Route: 042
     Dates: start: 20101130, end: 20110503
  2. INFLIXIMAB [Suspect]
     Active Substance: INFLIXIMAB
     Dosage: UNK (DOSE FORM: 230)
     Route: 042
     Dates: start: 20110628

REACTIONS (4)
  - Sepsis [Recovered/Resolved]
  - Anal abscess [Recovered/Resolved]
  - Sepsis [Recovered/Resolved]
  - Disease progression [Unknown]

NARRATIVE: CASE EVENT DATE: 20200823
